FAERS Safety Report 19365828 (Version 1)
Quarter: 2021Q2

REPORT INFORMATION
  Report Type: Spontaneous
  Country: US (occurrence: US)
  Receive Date: 20210603
  Receipt Date: 20210603
  Transmission Date: 20210717
  Serious: No
  Sender: FDA-Public Use
  Company Number: None

PATIENT
  Sex: Male

DRUGS (1)
  1. TRETINOIN. [Suspect]
     Active Substance: TRETINOIN
     Indication: HAIRY CELL LEUKAEMIA
     Route: 049
     Dates: start: 20200221

REACTIONS (3)
  - Vertigo [None]
  - Tinnitus [None]
  - Meniere^s disease [None]
